FAERS Safety Report 10050141 (Version 1)
Quarter: 2014Q1

REPORT INFORMATION
  Report Type: Spontaneous
  Country: US (occurrence: None)
  Receive Date: 20140331
  Receipt Date: 20140331
  Transmission Date: 20141002
  Serious: Yes (Disabling, Other)
  Sender: FDA-Public Use
  Company Number: None

PATIENT
  Age: 22 Year
  Sex: Female
  Weight: 99.79 kg

DRUGS (1)
  1. NORPLANT [Suspect]
     Indication: CONTRACEPTION
     Dosage: UNKNOWN, PRODUCT RELEASED, GIVEEN INTO.UNDER THE SKIN
     Dates: start: 19921006, end: 19930819

REACTIONS (12)
  - Irritability [None]
  - Mood swings [None]
  - Haemorrhage [None]
  - Muscle spasms [None]
  - Nausea [None]
  - Headache [None]
  - Weight increased [None]
  - Alopecia [None]
  - Depression [None]
  - Fatigue [None]
  - Malaise [None]
  - Convulsion [None]
